FAERS Safety Report 25304303 (Version 1)
Quarter: 2025Q2

REPORT INFORMATION
  Report Type: Spontaneous
  Country: GB (occurrence: GB)
  Receive Date: 20250513
  Receipt Date: 20250513
  Transmission Date: 20250716
  Serious: Yes (Other)
  Sender: IDORSIA PHARMACEUTICALS
  Company Number: GB-MHRA-TPP17704562C7955094YC1746554381299

PATIENT
  Age: 45 Year
  Sex: Female
  Weight: 81 kg

DRUGS (2)
  1. QUVIVIQ [Suspect]
     Active Substance: DARIDOREXANT
     Indication: Ill-defined disorder
     Route: 048
  2. AMITRIPTYLINE HYDROCHLORIDE [Concomitant]
     Active Substance: AMITRIPTYLINE HYDROCHLORIDE
     Indication: Ill-defined disorder
     Dates: start: 20231220

REACTIONS (1)
  - Clumsiness [Recovered/Resolved]
